FAERS Safety Report 17836290 (Version 3)
Quarter: 2020Q3

REPORT INFORMATION
  Report Type: Spontaneous
  Country: GB (occurrence: GB)
  Receive Date: 20200528
  Receipt Date: 20200709
  Transmission Date: 20201103
  Serious: Yes (Other)
  Sender: FDA-Public Use
  Company Number: GB-009507513-2005GBR007439

PATIENT
  Sex: Female

DRUGS (2)
  1. ETONOGESTREL IMPLANT? UNKNOWN [Concomitant]
     Active Substance: ETONOGESTREL
     Indication: CONTRACEPTION
     Dosage: IMPANT
     Route: 059
     Dates: start: 2016
  2. NEXPLANON [Suspect]
     Active Substance: ETONOGESTREL
     Indication: CONTRACEPTION
     Dosage: 1 IMPLANT; LEFT ARM
     Dates: start: 201911

REACTIONS (8)
  - Cellulitis [Unknown]
  - Pallor [Unknown]
  - Device dislocation [Not Recovered/Not Resolved]
  - Implant site pruritus [Recovered/Resolved]
  - Menstruation normal [Unknown]
  - Back pain [Unknown]
  - Premenstrual syndrome [Unknown]
  - Skin discolouration [Unknown]

NARRATIVE: CASE EVENT DATE: 201911
